FAERS Safety Report 8564459-0 (Version None)
Quarter: 2012Q3

REPORT INFORMATION
  Report Type: 
  Country: None (occurrence: None)
  Receive Date: 20120803
  Receipt Date: 20120723
  Transmission Date: 20120928
  Serious: Yes (Hospitalization)
  Sender: FDA-Public Use
  Company Number: IT-NOVOPROD-352451

PATIENT
  Age: 61 Year
  Sex: Male
  Weight: 104 kg

DRUGS (15)
  1. ACTOS [Concomitant]
     Dosage: 15 MG, QD
     Route: 048
     Dates: start: 20110521
  2. METFORMIN HYDROCHLORIDE [Concomitant]
     Dosage: 1000 MG (3 TABLETS/DIE)
     Dates: start: 20110121
  3. BISOPROLOL FUMARATE [Concomitant]
     Dosage: 2.5 (2 TABLETS/DIE)
  4. INSULIN [Concomitant]
  5. VICTOZA [Suspect]
     Indication: TYPE 2 DIABETES MELLITUS
     Dosage: 1.2 MG/DIE, UNK
     Route: 065
     Dates: start: 20110121, end: 20110720
  6. METFORMIN HYDROCHLORIDE [Concomitant]
     Dosage: 1000 MG (3 TABLETS/DIE)
     Dates: start: 20100521
  7. METFORMIN HYDROCHLORIDE [Concomitant]
     Dosage: 3000 MG, QD
     Route: 048
     Dates: start: 20100521
  8. NORVASC [Concomitant]
     Dosage: 1 TABLET/EVERY 18 HOURS
  9. BLOPRESS [Concomitant]
     Dosage: 1 TABLET/DIE
  10. VICTOZA [Suspect]
     Dosage: UNK
     Route: 065
     Dates: start: 20110723
  11. METFORMIN HYDROCHLORIDE [Concomitant]
     Dosage: 1000 MG (3 TABLETS/DIE)
  12. LANSOPRAZOLE [Concomitant]
     Dosage: 1 TABLET/DIE
  13. METFORMIN HYDROCHLORIDE [Concomitant]
     Dosage: 1000 MG, TID
     Route: 048
     Dates: end: 20090923
  14. LEVOFLOXACIN [Concomitant]
     Dosage: 500 MG 2 TABLETS/DIE
  15. LASIX [Concomitant]
     Dosage: 2 TABLETS/DIE

REACTIONS (2)
  - RESPIRATORY FAILURE [None]
  - INTERSTITIAL LUNG DISEASE [None]
